FAERS Safety Report 7640102-X (Version None)
Quarter: 2011Q3

REPORT INFORMATION
  Report Type: 
  Country: None (occurrence: None)
  Receive Date: 20110728
  Receipt Date: 20110718
  Transmission Date: 20111222
  Serious: Yes (Hospitalization)
  Sender: FDA-Public Use
  Company Number: SE-AMGEN-QUU410700

PATIENT
  Age: 72 Year
  Sex: Male

DRUGS (7)
  1. METHOTREXATE [Suspect]
     Indication: RHEUMATOID ARTHRITIS
     Dosage: UNK
     Dates: end: 20100215
  2. SOTALOL HYDROCHLORIDE [Concomitant]
  3. ENBREL [Suspect]
     Indication: RHEUMATOID ARTHRITIS
     Dosage: UNK
     Dates: start: 20030503, end: 20100315
  4. WARFARIN SODIUM [Concomitant]
  5. PREDNISOLONE [Concomitant]
  6. ACETAMINOPHEN [Concomitant]
  7. NASONEX [Concomitant]

REACTIONS (2)
  - MYELITIS [None]
  - HERPES ZOSTER [None]
